FAERS Safety Report 10368172 (Version 1)
Quarter: 2014Q3

REPORT INFORMATION
  Report Type: Spontaneous
  Country: US (occurrence: None)
  Receive Date: 20140805
  Receipt Date: 20140805
  Transmission Date: 20150326
  Serious: Yes (Hospitalization, Other)
  Sender: FDA-Public Use
  Company Number: DEP_02210_2014

PATIENT
  Sex: Female
  Weight: 220 kg

DRUGS (3)
  1. CRESTOR [Concomitant]
     Active Substance: ROSUVASTATIN CALCIUM
  2. GRALISE [Suspect]
     Active Substance: GABAPENTIN
     Indication: NEUROPATHY PERIPHERAL
     Dosage: 1800 MG, QD, AT BEDTIME
     Route: 048
  3. GRALISE [Suspect]
     Active Substance: GABAPENTIN
     Indication: OFF LABEL USE
     Dosage: 1800 MG, QD, AT BEDTIME
     Route: 048

REACTIONS (3)
  - Osteomyelitis [None]
  - Inappropriate schedule of drug administration [None]
  - Knee arthroplasty [None]
